FAERS Safety Report 14457403 (Version 2)
Quarter: 2019Q1

REPORT INFORMATION
  Report Type: Spontaneous
  Country: US (occurrence: US)
  Receive Date: 20180130
  Receipt Date: 20190108
  Transmission Date: 20190417
  Serious: No
  Sender: FDA-Public Use
  Company Number: US-PFIZER INC-2018033713

PATIENT
  Age: 68 Year
  Sex: Female

DRUGS (43)
  1. COMPAZINE /00013302/ [Suspect]
     Active Substance: PROCHLORPERAZINE EDISYLATE
     Indication: MIGRAINE
     Dosage: UNK
  2. INDOCIN [Suspect]
     Active Substance: INDOMETHACIN
     Indication: MIGRAINE
     Dosage: UNK
  3. MIDRIN /00450801/ [Suspect]
     Active Substance: ACETAMINOPHEN\DICHLORALPHENAZONE\ISOMETHEPTENE HYDROCHLORIDE
     Indication: MIGRAINE
     Dosage: UNK
  4. NAPROSYN [Suspect]
     Active Substance: NAPROXEN
     Indication: MIGRAINE
     Dosage: UNK
  5. NORCO [Suspect]
     Active Substance: ACETAMINOPHEN\HYDROCODONE BITARTRATE
     Indication: MIGRAINE
     Dosage: UNK
  6. PAPAVERINE [Suspect]
     Active Substance: PAPAVERINE
     Indication: MIGRAINE
     Dosage: UNK
  7. PREDNISONE. [Suspect]
     Active Substance: PREDNISONE
     Indication: MIGRAINE
     Dosage: UNK
  8. TOPAMAX [Suspect]
     Active Substance: TOPIRAMATE
     Indication: MIGRAINE
     Dosage: UNK
  9. TYLENOL WITH CODEINE [Suspect]
     Active Substance: ACETAMINOPHEN\CODEINE PHOSPHATE
     Indication: MIGRAINE
     Dosage: UNK
  10. BELLERGAL [Suspect]
     Active Substance: BELLADONNA\ERGOTAMINE TARTRATE\PHENOBARBITAL
     Indication: MIGRAINE
     Dosage: UNK
  11. ELAVIL [Suspect]
     Active Substance: AMITRIPTYLINE HYDROCHLORIDE
     Indication: MIGRAINE
     Dosage: UNK
  12. FIORICET [Suspect]
     Active Substance: ACETAMINOPHEN\BUTALBITAL\CAFFEINE
     Indication: MIGRAINE
     Dosage: UNK
  13. REGLAN [Suspect]
     Active Substance: METOCLOPRAMIDE HYDROCHLORIDE
     Indication: MIGRAINE
     Dosage: UNK
  14. TYLENOL [Suspect]
     Active Substance: ACETAMINOPHEN
     Indication: MIGRAINE
     Dosage: UNK
  15. VITAMIN B2 /00154901/ [Suspect]
     Active Substance: RIBOFLAVIN
     Indication: MIGRAINE
     Dosage: UNK
  16. ALEVE [Suspect]
     Active Substance: NAPROXEN SODIUM
     Indication: MIGRAINE
     Dosage: UNK
  17. EXCEDRIN [Suspect]
     Active Substance: ACETAMINOPHEN\ASPIRIN\CAFFEINE
     Indication: MIGRAINE
     Dosage: UNK
  18. MAXALT [Suspect]
     Active Substance: RIZATRIPTAN BENZOATE
     Indication: MIGRAINE
     Dosage: UNK
  19. TORADOL [Suspect]
     Active Substance: KETOROLAC TROMETHAMINE
     Indication: MIGRAINE
     Dosage: UNK
  20. VIOXX [Suspect]
     Active Substance: ROFECOXIB
     Indication: MIGRAINE
     Dosage: UNK
  21. AXERT [Suspect]
     Active Substance: ALMOTRIPTAN MALATE
     Indication: MIGRAINE
     Dosage: UNK
  22. CAFERGOT [Suspect]
     Active Substance: CAFFEINE\ERGOTAMINE TARTRATE
     Indication: MIGRAINE
     Dosage: UNK
  23. DEPAKOTE [Suspect]
     Active Substance: DIVALPROEX SODIUM
     Indication: MIGRAINE
     Dosage: UNK
  24. CALCIUM W/MAGNESIUM [Suspect]
     Active Substance: CALCIUM\MAGNESIUM
     Indication: MIGRAINE
     Dosage: UNK
  25. NAMENDA [Suspect]
     Active Substance: MEMANTINE HYDROCHLORIDE
     Indication: MIGRAINE
     Dosage: UNK
  26. PROMETRIUM [Suspect]
     Active Substance: PROGESTERONE
     Indication: MIGRAINE
     Dosage: UNK
  27. ERGOT [Suspect]
     Active Substance: ERGOLOID MESYLATES
     Indication: MIGRAINE
     Dosage: UNK
  28. MIGRANAL [Suspect]
     Active Substance: DIHYDROERGOTAMINE MESYLATE
     Indication: MIGRAINE
     Dosage: UNK
  29. STADOL [Suspect]
     Active Substance: BUTORPHANOL TARTRATE
     Indication: MIGRAINE
     Dosage: UNK
  30. ADVIL [Suspect]
     Active Substance: IBUPROFEN
     Indication: MIGRAINE
     Dosage: UNK
  31. RELPAX [Suspect]
     Active Substance: ELETRIPTAN HYDROBROMIDE
     Indication: MIGRAINE
     Dosage: UNK
  32. DARVON [Suspect]
     Active Substance: PROPOXYPHENE HYDROCHLORIDE
     Indication: MIGRAINE
     Dosage: UNK
     Dates: start: 1962, end: 1975
  33. D.H.E. 45 [Suspect]
     Active Substance: DIHYDROERGOTAMINE MESYLATE
     Indication: MIGRAINE
     Dosage: UNK
  34. NUBAIN [Suspect]
     Active Substance: NALBUPHINE HYDROCHLORIDE
     Indication: MIGRAINE
     Dosage: UNK
  35. ESTRACE [Suspect]
     Active Substance: ESTRADIOL
     Indication: MIGRAINE
     Dosage: UNK
  36. IMITREX [Suspect]
     Active Substance: SUMATRIPTAN SUCCINATE
     Indication: MIGRAINE
     Dosage: UNK
  37. VICODIN [Suspect]
     Active Substance: ACETAMINOPHEN\HYDROCODONE BITARTRATE
     Indication: MIGRAINE
     Dosage: UNK
  38. COENZYME Q10 [Suspect]
     Active Substance: UBIDECARENONE
     Indication: MIGRAINE
     Dosage: UNK
  39. FIORINAL [Suspect]
     Active Substance: ASPIRIN\BUTALBITAL\CAFFEINE
     Indication: MIGRAINE
     Dosage: UNK
  40. LASIX [Suspect]
     Active Substance: FUROSEMIDE
     Indication: MIGRAINE
     Dosage: UNK
  41. SINGULAIR [Suspect]
     Active Substance: MONTELUKAST SODIUM
     Indication: MIGRAINE
     Dosage: UNK
  42. WIGRAINE /00060301/ [Suspect]
     Active Substance: CAFFEINE\ERGOTAMINE
     Indication: MIGRAINE
     Dosage: UNK
  43. ZOMIG [Suspect]
     Active Substance: ZOLMITRIPTAN
     Indication: MIGRAINE
     Dosage: UNK

REACTIONS (1)
  - Drug ineffective [Unknown]
